FAERS Safety Report 19147097 (Version 2)
Quarter: 2021Q3

REPORT INFORMATION
  Report Type: Spontaneous
  Country: PL (occurrence: PL)
  Receive Date: 20210416
  Receipt Date: 20210720
  Transmission Date: 20211014
  Serious: Yes (Hospitalization, Other)
  Sender: FDA-Public Use
  Company Number: PL-JNJFOC-20210425382

PATIENT
  Age: 48 Year
  Sex: Female

DRUGS (9)
  1. CONCOR COR [Concomitant]
     Active Substance: BISOPROLOL FUMARATE
     Dosage: 1.25 MG 1?0?0
  2. KALIPOZ PROLONGATE [Concomitant]
     Active Substance: POTASSIUM CHLORIDE
  3. TERTENSIF [Concomitant]
     Active Substance: INDAPAMIDE
  4. VENTAVIS [Suspect]
     Active Substance: ILOPROST
     Indication: PULMONARY ARTERIAL HYPERTENSION
     Dosage: 8 INH/DAY
     Route: 055
     Dates: start: 202101
  5. VENTAVIS [Suspect]
     Active Substance: ILOPROST
     Indication: PULMONARY ARTERIAL HYPERTENSION
     Dosage: 5 UG 6 INHALATIONS DAILY
     Route: 055
     Dates: start: 2010
  6. AMLOPIN [AMLODIPINE BESILATE] [Concomitant]
     Active Substance: AMLODIPINE BESYLATE
     Dosage: 5 MG 0?0?1
  7. BOSENTAN. [Concomitant]
     Active Substance: BOSENTAN
     Route: 065
  8. ZOCOR [Concomitant]
     Active Substance: SIMVASTATIN
     Indication: DYSLIPIDAEMIA
     Dosage: 10 MG
  9. SILDENAFIL. [Concomitant]
     Active Substance: SILDENAFIL
     Indication: PULMONARY ARTERIAL HYPERTENSION
     Dosage: 3X20 MG ORALLY
     Route: 048

REACTIONS (9)
  - Contraindicated product administered [Unknown]
  - Hepatic cirrhosis [Unknown]
  - Cardiovascular disorder [Unknown]
  - Exercise tolerance decreased [Unknown]
  - Atrial fibrillation [Unknown]
  - Thrombosis [Unknown]
  - Right ventricular failure [Unknown]
  - Circulatory collapse [Unknown]
  - Oedema peripheral [Unknown]

NARRATIVE: CASE EVENT DATE: 2010
